FAERS Safety Report 7620457-2 (Version None)
Quarter: 2011Q3

REPORT INFORMATION
  Report Type: 
  Country: None (occurrence: None)
  Receive Date: 20110719
  Receipt Date: 20110711
  Transmission Date: 20111222
  Serious: Yes (Hospitalization, Disabling, Other)
  Sender: FDA-Public Use
  Company Number: PHHO2008DE05961

PATIENT
  Sex: Male
  Weight: 90.1 kg

DRUGS (5)
  1. METHYLPREDNISOLONE [Concomitant]
     Indication: RENAL TRANSPLANT
     Dosage: 4 MG, QD
     Route: 048
     Dates: start: 20080123
  2. NEORAL [Suspect]
     Indication: RENAL TRANSPLANT
     Dosage: 70 MG, BID
     Route: 048
     Dates: start: 20080123
  3. EVEROLIMUS [Suspect]
     Dosage: 0.5 MG, BID
     Route: 048
  4. EVEROLIMUS [Suspect]
     Indication: RENAL TRANSPLANT
     Dosage: 0.75 MG, BID
     Route: 048
     Dates: start: 20080423
  5. PRAVASTATIN [Concomitant]
     Indication: HYPERCHOLESTEROLAEMIA

REACTIONS (6)
  - LYMPHOCELE [None]
  - URINARY TRACT INFECTION [None]
  - NEPHROLITHIASIS [None]
  - OEDEMA PERIPHERAL [None]
  - CONCOMITANT DISEASE PROGRESSION [None]
  - ESCHERICHIA INFECTION [None]
